FAERS Safety Report 26058099 (Version 2)
Quarter: 2025Q4

REPORT INFORMATION
  Report Type: Report from Study
  Country: PH (occurrence: PH)
  Receive Date: 20251118
  Receipt Date: 20251205
  Transmission Date: 20260117
  Serious: Yes (Other)
  Sender: ROCHE
  Company Number: PH-ROCHE-10000434826

PATIENT
  Age: 44 Year
  Sex: Female
  Weight: 77 kg

DRUGS (2)
  1. PERJETA [Suspect]
     Active Substance: PERTUZUMAB
     Indication: Product used for unknown indication
     Route: 065
  2. PERJETA [Suspect]
     Active Substance: PERTUZUMAB
     Dosage: RECENT DOSE
     Route: 065
     Dates: start: 20250710

REACTIONS (2)
  - Breast operation [Unknown]
  - Breast mass [Unknown]

NARRATIVE: CASE EVENT DATE: 20250929
